FAERS Safety Report 12559610 (Version 1)
Quarter: 2016Q3

REPORT INFORMATION
  Report Type: Spontaneous
  Country: US (occurrence: None)
  Receive Date: 20160714
  Receipt Date: 20160714
  Transmission Date: 20161109
  Serious: Yes (Other)
  Sender: FDA-Public Use
  Company Number: None

PATIENT
  Age: 60 Year
  Sex: Female
  Weight: 79.38 kg

DRUGS (18)
  1. PREVACID [Concomitant]
     Active Substance: LANSOPRAZOLE
  2. AMBIEN [Concomitant]
     Active Substance: ZOLPIDEM TARTRATE
  3. AMINO ACIDS [Concomitant]
     Active Substance: AMINO ACIDS
  4. INSULIN [Concomitant]
     Active Substance: INSULIN NOS
  5. SAVELLA [Concomitant]
     Active Substance: MILNACIPRAN HYDROCHLORIDE
  6. NATURE-THROID [Concomitant]
     Active Substance: THYROID, PORCINE
  7. THYROTAIN [Concomitant]
  8. CITALOPRAM [Concomitant]
     Active Substance: CITALOPRAM HYDROBROMIDE
  9. MAGNESIUM [Concomitant]
     Active Substance: MAGNESIUM
  10. VITAMIN D3 [Concomitant]
     Active Substance: CHOLECALCIFEROL
  11. DOMPERIDONE [Concomitant]
     Active Substance: DOMPERIDONE
  12. ZYRTEC [Concomitant]
     Active Substance: CETIRIZINE HYDROCHLORIDE
  13. DAILY MULTI [Concomitant]
  14. PROBIOTIC [Concomitant]
     Active Substance: PROBIOTICS NOS
  15. DIGESTIVE ENZYMES [Concomitant]
     Active Substance: UNSPECIFIED INGREDIENT
  16. MYRBETRIQ [Suspect]
     Active Substance: MIRABEGRON
     Indication: HYPERTONIC BLADDER
     Dosage: 30 TABLET(S) ONCE A DAY TAKEN BY MOUTH
     Route: 048
  17. GABAPENTIN. [Concomitant]
     Active Substance: GABAPENTIN
  18. ZINC [Concomitant]
     Active Substance: ZINC\ZINC CHLORIDE

REACTIONS (2)
  - Stomatitis [None]
  - Neoplasm malignant [None]

NARRATIVE: CASE EVENT DATE: 20160503
